FAERS Safety Report 24051841 (Version 2)
Quarter: 2024Q3

REPORT INFORMATION
  Report Type: Spontaneous
  Country: US (occurrence: US)
  Receive Date: 20240704
  Receipt Date: 20240809
  Transmission Date: 20241017
  Serious: Yes (Other)
  Sender: PFIZER
  Company Number: US-PFIZER INC-202400204317

PATIENT
  Sex: Male

DRUGS (2)
  1. RUXIENCE [Suspect]
     Active Substance: RITUXIMAB-PVVR
     Indication: Granulomatosis with polyangiitis
     Dosage: UNK
  2. RUXIENCE [Suspect]
     Active Substance: RITUXIMAB-PVVR
     Indication: Rheumatoid arthritis

REACTIONS (2)
  - Erectile dysfunction [Unknown]
  - Libido decreased [Unknown]
